FAERS Safety Report 8823743 (Version 2)
Quarter: 2012Q4

REPORT INFORMATION
  Report Type: 
  Country: US (occurrence: US)
  Receive Date: 20121003
  Receipt Date: 20121022
  Transmission Date: 20130627
  Serious: No
  Sender: FDA-Public Use
  Company Number: US-VERTEX PHARMACEUTICAL INC.-2012-021197

PATIENT
  Sex: Male
  Weight: 136 kg

DRUGS (11)
  1. VX-950 [Suspect]
     Indication: HEPATITIS C
     Dosage: 750 mg, tid
     Route: 048
     Dates: start: 20120403
  2. PEGASYS [Concomitant]
     Indication: HEPATITIS C
     Dosage: 135 ?g,weekly
     Route: 058
     Dates: start: 20120403
  3. RIBASPHERE [Concomitant]
     Indication: HEPATITIS C
     Dosage: 1000 mg, qd
     Route: 048
     Dates: start: 20120403
  4. ZOLOFT [Concomitant]
     Dosage: 50 mg, qd
     Route: 048
  5. PREDNISONE [Concomitant]
     Dosage: 5 mg, qd
     Route: 048
  6. PRILOSEC                           /00661201/ [Concomitant]
     Dosage: qd20 mg, qd
     Route: 048
  7. ALLOPURINOL [Concomitant]
     Dosage: 100 mg, qd
     Route: 048
  8. CLARITIN                           /00413701/ [Concomitant]
     Dosage: 10 mg, qd
     Route: 048
  9. SUBOXONE [Concomitant]
     Dosage: 8 mg-2mg
  10. CALCIUM + VITAMIN D                /01483701/ [Concomitant]
     Dosage: UNK, qd
     Route: 048
  11. IBUPROFEN [Concomitant]
     Dosage: 200 mg, qd
     Route: 048

REACTIONS (2)
  - Blood pressure increased [Unknown]
  - Oedema peripheral [Unknown]
